FAERS Safety Report 11797916 (Version 2)
Quarter: 2015Q4

REPORT INFORMATION
  Report Type: Report from Study
  Country: ES (occurrence: ES)
  Receive Date: 20151203
  Receipt Date: 20151216
  Transmission Date: 20160305
  Serious: Yes (Death)
  Sender: FDA-Public Use
  Company Number: ES-ELI_LILLY_AND_COMPANY-ES201511009227

PATIENT
  Age: 49 Year
  Sex: Female
  Weight: 79 kg

DRUGS (5)
  1. ZYPADHERA [Suspect]
     Active Substance: OLANZAPINE PAMOATE
     Indication: SCHIZOPHRENIA
     Dosage: 405 MG, EVERY 21 DAYS
     Route: 030
     Dates: start: 20150409, end: 20150906
  2. OLANZAPINE. [Suspect]
     Active Substance: OLANZAPINE
     Indication: AGITATION
     Dosage: 10/20 MG/DAY AS NEEDED
     Route: 048
     Dates: start: 20150713
  3. CLONAZEPAM. [Concomitant]
     Active Substance: CLONAZEPAM
     Indication: ANXIETY
     Dosage: UNK
     Route: 048
     Dates: start: 20130906
  4. LEVOMEPROMAZINE                    /00038602/ [Concomitant]
     Indication: AGITATION
     Dosage: UNK
     Dates: start: 20150713
  5. BIPERIDEN                          /00079502/ [Concomitant]
     Indication: TREMOR
     Dosage: UNK
     Dates: start: 20150713

REACTIONS (3)
  - Death [Fatal]
  - Sedation [Not Recovered/Not Resolved]
  - Prescribed overdose [Unknown]

NARRATIVE: CASE EVENT DATE: 20150615
